FAERS Safety Report 4416047-5 (Version None)
Quarter: 2004Q3

REPORT INFORMATION
  Report Type: 
  Country: None (occurrence: None)
  Receive Date: 20040730
  Receipt Date: 20040717
  Transmission Date: 20050211
  Serious: Yes (Life-Threatening, Hospitalization, Other)
  Sender: FDA-Public Use
  Company Number: 2004048640

PATIENT
  Sex: Male

DRUGS (2)
  1. VIAGRA [Suspect]
     Indication: ILL-DEFINED DISORDER
  2. FUROSEMIDE [Suspect]
     Indication: ILL-DEFINED DISORDER

REACTIONS (2)
  - DRUG INTERACTION [None]
  - UNEVALUABLE EVENT [None]
